FAERS Safety Report 19313833 (Version 1)
Quarter: 2021Q2

REPORT INFORMATION
  Report Type: Spontaneous
  Country: CA (occurrence: CA)
  Receive Date: 20210527
  Receipt Date: 20210527
  Transmission Date: 20210717
  Serious: Yes (Other)
  Sender: FDA-Public Use
  Company Number: CA-TEVA-2021-CA-1914349

PATIENT
  Age: 66 Year
  Sex: Male
  Weight: 101 kg

DRUGS (13)
  1. QUETIAPINE. [Suspect]
     Active Substance: QUETIAPINE
     Indication: INSOMNIA
     Route: 048
  2. DOMPERIDONE MALEATE [Concomitant]
     Active Substance: DOMPERIDONE MALEATE
  3. ESCITALOPRAM [Concomitant]
     Active Substance: ESCITALOPRAM OXALATE
  4. ROSUVASTATIN. [Concomitant]
     Active Substance: ROSUVASTATIN
     Route: 048
  5. PREGABALIN. [Concomitant]
     Active Substance: PREGABALIN
  6. TOVIAZ [Concomitant]
     Active Substance: FESOTERODINE FUMARATE
  7. AMITRIPTYLINE [Concomitant]
     Active Substance: AMITRIPTYLINE
     Route: 065
  8. CELECOXIB. [Concomitant]
     Active Substance: CELECOXIB
  9. QUETIAPINE. [Suspect]
     Active Substance: QUETIAPINE
     Indication: PAIN
     Route: 048
  10. QUETIAPINE. [Suspect]
     Active Substance: QUETIAPINE
     Indication: MUSCLE SPASMS
     Route: 048
  11. TRAZODONE [Concomitant]
     Active Substance: TRAZODONE HYDROCHLORIDE
  12. MORPHINE [Concomitant]
     Active Substance: MORPHINE
  13. TAMSULOSIN [Concomitant]
     Active Substance: TAMSULOSIN

REACTIONS (3)
  - Dyspnoea [Recovered/Resolved]
  - Dyspnoea exertional [Recovered/Resolved]
  - Fatigue [Recovered/Resolved]
